APPROVED DRUG PRODUCT: DOFETILIDE
Active Ingredient: DOFETILIDE
Strength: 0.25MG
Dosage Form/Route: CAPSULE;ORAL
Application: A210018 | Product #002
Applicant: TEVA PHARMACEUTICALS USA INC
Approved: Apr 15, 2022 | RLD: No | RS: No | Type: DISCN